FAERS Safety Report 14876579 (Version 2)
Quarter: 2018Q2

REPORT INFORMATION
  Report Type: Spontaneous
  Country: SI (occurrence: SI)
  Receive Date: 20180510
  Receipt Date: 20180516
  Transmission Date: 20180711
  Serious: Yes (Other)
  Sender: FDA-Public Use
  Company Number: PHHY2018SI002995

PATIENT
  Age: 66 Year
  Sex: Male
  Weight: 78 kg

DRUGS (1)
  1. ACIPAN [Suspect]
     Active Substance: PANTOPRAZOLE SODIUM
     Indication: GASTRITIS
     Dosage: 20 MG, UNK
     Route: 048
     Dates: start: 20161222

REACTIONS (1)
  - Atrial fibrillation [Recovered/Resolved with Sequelae]

NARRATIVE: CASE EVENT DATE: 20170816
